FAERS Safety Report 20461251 (Version 1)
Quarter: 2022Q1

REPORT INFORMATION
  Report Type: Spontaneous
  Country: US (occurrence: None)
  Receive Date: 20220210
  Receipt Date: 20220210
  Transmission Date: 20220423
  Serious: Yes (Other)
  Sender: FDA-Public Use
  Company Number: None

PATIENT
  Age: 37 Year
  Sex: Male
  Weight: 75.6 kg

DRUGS (1)
  1. SUBOXONE [Suspect]
     Active Substance: BUPRENORPHINE HYDROCHLORIDE\NALOXONE HYDROCHLORIDE
     Indication: Drug dependence
     Dosage: OTHER QUANTITY : 2 SUBLINGUAL FILM ST;?FREQUENCY : DAILY;?
     Route: 060
     Dates: start: 20191001, end: 20220210

REACTIONS (2)
  - Dental caries [None]
  - Toothache [None]

NARRATIVE: CASE EVENT DATE: 20200310
